FAERS Safety Report 7723082-8 (Version None)
Quarter: 2011Q3

REPORT INFORMATION
  Report Type: 
  Country: None (occurrence: None)
  Receive Date: 20110901
  Receipt Date: 20110824
  Transmission Date: 20111222
  Serious: Yes (Hospitalization)
  Sender: FDA-Public Use
  Company Number: HK-JNJFOC-20110410334

PATIENT
  Sex: Male
  Weight: 79.5 kg

DRUGS (3)
  1. PALIPERIDONE [Suspect]
     Route: 030
     Dates: start: 20110421
  2. PALIPERIDONE [Suspect]
     Indication: SCHIZOPHRENIA
     Route: 030
     Dates: start: 20110218
  3. ATIVAN [Concomitant]
     Indication: SLEEP DISORDER
     Dates: start: 20110225

REACTIONS (1)
  - MENTAL IMPAIRMENT [None]
